FAERS Safety Report 9536529 (Version 1)
Quarter: 2013Q3

REPORT INFORMATION
  Report Type: Spontaneous
  Country: US (occurrence: US)
  Receive Date: 20130919
  Receipt Date: 20130919
  Transmission Date: 20140515
  Serious: No
  Sender: FDA-Public Use
  Company Number: US-BAYER-2013-113131

PATIENT
  Age: 79 Year
  Sex: Female
  Weight: 67.12 kg

DRUGS (7)
  1. ALEVE CAPLET [Suspect]
     Dosage: 2 DF, QD
     Route: 048
  2. CALCIUM [Concomitant]
  3. MAGNESIUM OXIDE [Concomitant]
  4. LISINOPRIL [Concomitant]
  5. ASPIRIN [Concomitant]
  6. ATENOLOL [Concomitant]
  7. CRESTOR [Concomitant]
     Dosage: UNK UNK, QOD

REACTIONS (4)
  - Extra dose administered [None]
  - Chest discomfort [Not Recovered/Not Resolved]
  - Anxiety [None]
  - Nervousness [Recovered/Resolved]
